FAERS Safety Report 23048879 (Version 1)
Quarter: 2023Q4

REPORT INFORMATION
  Report Type: Spontaneous
  Country: FR (occurrence: FR)
  Receive Date: 20231010
  Receipt Date: 20231010
  Transmission Date: 20240109
  Serious: Yes (Other)
  Sender: FDA-Public Use
  Company Number: FR-009507513-2309FRA002936

PATIENT
  Age: 46 Year
  Sex: Female
  Weight: 55 kg

DRUGS (5)
  1. DIPROSONE [Suspect]
     Active Substance: BETAMETHASONE DIPROPIONATE
     Indication: Skin disorder
     Dosage: UNK
     Dates: start: 202308
  2. KEYTRUDA [Suspect]
     Active Substance: PEMBROLIZUMAB
     Indication: Triple negative breast cancer
     Dosage: 200 MILLIGRAM, Q3W
  3. PREDNISOLONE [Suspect]
     Active Substance: PREDNISOLONE
     Indication: Skin disorder
     Dosage: UNK
     Dates: start: 202308
  4. CARBOPLATIN [Concomitant]
     Active Substance: CARBOPLATIN
     Indication: Triple negative breast cancer
     Dosage: AREA UNDER THE CURVE (AUC) 1.5 ON DAYS 1, 8, AND 15 EVERY 21 DAYS
     Dates: start: 20230706
  5. PACLITAXEL [Concomitant]
     Active Substance: PACLITAXEL
     Indication: Triple negative breast cancer
     Dosage: 80 MG/M2 AREA UNDER THE CURVE (AUC) 1.5 ON DAYS 1, 8, AND 15 EVERY 21 DAYS
     Dates: start: 20230706

REACTIONS (3)
  - Morphoea [Recovered/Resolved]
  - Device related infection [Unknown]
  - Osteoporosis [Unknown]

NARRATIVE: CASE EVENT DATE: 20230701
